FAERS Safety Report 14303143 (Version 9)
Quarter: 2021Q2

REPORT INFORMATION
  Report Type: Spontaneous
  Country: ES (occurrence: ES)
  Receive Date: 20171219
  Receipt Date: 20210513
  Transmission Date: 20210716
  Serious: Yes (Hospitalization, Other)
  Sender: FDA-Public Use
  Company Number: ES-MYLANLABS-2017M1079050

PATIENT
  Age: 87 Year
  Sex: Male
  Weight: 87 kg

DRUGS (45)
  1. STELARA [Suspect]
     Active Substance: USTEKINUMAB
     Dosage: UNK
  2. AUXINA A+E [Concomitant]
     Active Substance: RETINOL\TOCOPHEROL
     Indication: PRODUCT USED FOR UNKNOWN INDICATION
     Dosage: UNK, QD
     Route: 048
     Dates: start: 201704, end: 20170726
  3. DACORTIN [Concomitant]
     Active Substance: PREDNISONE
     Indication: PRODUCT USED FOR UNKNOWN INDICATION
     Dosage: 5 MG, QD
     Route: 065
     Dates: end: 20170801
  4. ENALAPRIL [Concomitant]
     Active Substance: ENALAPRIL
     Dosage: 10 MG, QD
     Route: 065
  5. ACICLOVIR [Suspect]
     Active Substance: ACYCLOVIR
     Indication: PRODUCT USED FOR UNKNOWN INDICATION
     Dosage: 45 MILLIGRAM
     Route: 058
  6. ACICLOVIR [Suspect]
     Active Substance: ACYCLOVIR
     Indication: PRODUCT USED FOR UNKNOWN INDICATION
     Dosage: 400 MILLIGRAM, Q8H
     Route: 042
     Dates: start: 20170810
  7. BETAMETHASONE W/CALCIPOTRIOL [Concomitant]
     Active Substance: BETAMETHASONE DIPROPIONATE\CALCIPOTRIENE HYDRATE
     Dosage: 1 DF, QD
     Dates: start: 201704
  8. DIPROGENTA [Concomitant]
     Active Substance: BETAMETHASONE DIPROPIONATE\GENTAMICIN SULFATE
     Indication: PRODUCT USED FOR UNKNOWN INDICATION
     Dosage: UNK, EVERY 12 HR
     Route: 061
  9. DIPROGENTA [Concomitant]
     Active Substance: BETAMETHASONE DIPROPIONATE\GENTAMICIN SULFATE
     Dosage: 1 DF, QD
     Route: 061
  10. SALMETEROL [Concomitant]
     Active Substance: SALMETEROL
     Dosage: UNK UNK,Q12H
     Route: 055
  11. NOLOTIL                            /06276702/ [Suspect]
     Active Substance: METAMIZOLE MAGNESIUM
     Indication: PRODUCT USED FOR UNKNOWN INDICATION
     Dosage: UNK, Q8H
     Route: 042
     Dates: start: 201708
  12. JUNIPER OIL [Concomitant]
     Active Substance: HERBALS\JUNIPERUS COMMUNIS WHOLE
     Indication: PRODUCT USED FOR UNKNOWN INDICATION
     Dosage: UNK, QD (BATHROOMS WITH JUNIPER OIL ONCE A DAY FOR 20 MINUTES)
     Route: 065
  13. ACITRETIN. [Concomitant]
     Active Substance: ACITRETIN
     Indication: PRODUCT USED FOR UNKNOWN INDICATION
     Dosage: 25 MG, QD
     Route: 065
     Dates: start: 20170728
  14. MONOLITUM [Concomitant]
     Active Substance: LANSOPRAZOLE
     Indication: PRODUCT USED FOR UNKNOWN INDICATION
     Dosage: 30 MG, QD
     Route: 065
  15. BETAMETHASONE W/CALCIPOTRIOL [Concomitant]
     Active Substance: BETAMETHASONE DIPROPIONATE\CALCIPOTRIENE HYDRATE
     Indication: PRODUCT USED FOR UNKNOWN INDICATION
     Dosage: 1 DOSAGE FORM, 1 DF,Q12H
     Dates: start: 201704
  16. JUNIPER OIL [Concomitant]
     Active Substance: HERBALS\JUNIPERUS COMMUNIS WHOLE
     Dosage: 1 DF,QD
     Route: 065
  17. SALMETEROL [Concomitant]
     Active Substance: SALMETEROL
     Indication: PRODUCT USED FOR UNKNOWN INDICATION
     Dosage: UNK, QD
  18. SALMETEROL [Concomitant]
     Active Substance: SALMETEROL
     Dosage: (1 INHALATION) EVERY 12 HOURS
     Route: 055
  19. AZITHROMYCIN ANHYDROUS. [Concomitant]
     Active Substance: AZITHROMYCIN ANHYDROUS
     Indication: PRODUCT USED FOR UNKNOWN INDICATION
     Dosage: UNK
     Route: 065
     Dates: start: 20170812
  20. BRETARIS GENUAIR [Concomitant]
     Active Substance: ACLIDINIUM BROMIDE
     Dosage: 1 DF,Q12H
     Route: 065
  21. STELARA [Suspect]
     Active Substance: USTEKINUMAB
     Indication: ERYTHRODERMIC PSORIASIS
     Dosage: 45 MG, UNK
     Route: 058
     Dates: start: 20170803, end: 20170803
  22. STELARA [Suspect]
     Active Substance: USTEKINUMAB
     Indication: PSORIASIS
     Dosage: 45 MG, UNK
     Route: 058
  23. SIMVASTATIN. [Concomitant]
     Active Substance: SIMVASTATIN
     Indication: PRODUCT USED FOR UNKNOWN INDICATION
     Dosage: 20 MG, QD
     Route: 065
  24. LORATADINE. [Concomitant]
     Active Substance: LORATADINE
     Indication: PRODUCT USED FOR UNKNOWN INDICATION
     Dosage: 10 MG, QD
     Route: 048
     Dates: start: 20170726
  25. PARACETAMOL [Concomitant]
     Active Substance: ACETAMINOPHEN
     Indication: PRODUCT USED FOR UNKNOWN INDICATION
     Dosage: 650 MG, BID (EVERY 12 HOURS)
     Route: 065
  26. ZYLORIC [Concomitant]
     Active Substance: ALLOPURINOL
     Indication: PRODUCT USED FOR UNKNOWN INDICATION
     Dosage: 100 MG, QD
     Route: 065
  27. ALDACTONE [Concomitant]
     Active Substance: SPIRONOLACTONE
     Indication: PRODUCT USED FOR UNKNOWN INDICATION
     Dosage: 25 MG, QD
     Route: 065
     Dates: end: 20170802
  28. ACICLOVIR [Suspect]
     Active Substance: ACYCLOVIR
     Dosage: 1200 MILLIGRAM, QD
     Route: 042
     Dates: start: 20170810
  29. ALLOPURINOL. [Suspect]
     Active Substance: ALLOPURINOL
     Indication: PRODUCT USED FOR UNKNOWN INDICATION
     Dosage: DOSAGE FORM: UNSPECIFIED, ON ALLOPURINOL FOR 6 YEARS
     Route: 065
     Dates: start: 2011
  30. FLUCONAZOLE. [Suspect]
     Active Substance: FLUCONAZOLE
     Indication: PRODUCT USED FOR UNKNOWN INDICATION
     Dosage: 200 MG, QD
     Route: 042
     Dates: start: 20170810
  31. OMNIC OCAS [Concomitant]
     Active Substance: TAMSULOSIN HYDROCHLORIDE
     Indication: PRODUCT USED FOR UNKNOWN INDICATION
     Dosage: UNK, QD
     Route: 065
  32. BRETARIS GENUAIR [Concomitant]
     Active Substance: ACLIDINIUM BROMIDE
     Indication: PRODUCT USED FOR UNKNOWN INDICATION
     Dosage: UNK, QD
     Route: 055
  33. BRETARIS GENUAIR [Concomitant]
     Active Substance: ACLIDINIUM BROMIDE
     Indication: PRODUCT USED FOR UNKNOWN INDICATION
     Dosage: UNK, BID (UNK, Q12H)
     Route: 065
  34. NEOTIGASON [Suspect]
     Active Substance: ACITRETIN
     Indication: ERYTHRODERMIC PSORIASIS
     Dosage: 25 MG, QD
     Route: 065
     Dates: start: 20170728
  35. NEOTIGASON [Suspect]
     Active Substance: ACITRETIN
     Dosage: 50 MG, QD
     Route: 065
     Dates: end: 20170728
  36. METAMIZOLE SODIUM [Suspect]
     Active Substance: METAMIZOLE SODIUM
     Indication: PRODUCT USED FOR UNKNOWN INDICATION
     Dosage: UNK
     Route: 042
     Dates: start: 201708
  37. LORATADINE. [Concomitant]
     Active Substance: LORATADINE
     Dosage: 30 MG, QD
     Route: 048
     Dates: start: 20170726
  38. BILAXTEN [Concomitant]
     Active Substance: BILASTINE
     Indication: PRODUCT USED FOR UNKNOWN INDICATION
     Dosage: 40 MG, QD
     Route: 065
     Dates: end: 20170726
  39. CEFTRIAXONE. [Suspect]
     Active Substance: CEFTRIAXONE
     Indication: PRODUCT USED FOR UNKNOWN INDICATION
     Dosage: 500 MILLIGRAM
     Route: 030
     Dates: start: 201708, end: 20170812
  40. BILAXTEN [Concomitant]
     Active Substance: BILASTINE
     Dosage: 20 MG, QD
     Route: 065
     Dates: end: 20170726
  41. EUCERIN                            /01160201/ [Concomitant]
     Active Substance: LANOLIN\MINERAL OIL\PETROLATUM
     Indication: PRODUCT USED FOR UNKNOWN INDICATION
     Dosage: UNK
     Route: 065
  42. SEGURIL [Concomitant]
     Active Substance: FUROSEMIDE
     Indication: PRODUCT USED FOR UNKNOWN INDICATION
     Dosage: 60 MG, QD
     Route: 065
     Dates: end: 20170802
  43. ENALAPRIL [Concomitant]
     Active Substance: ENALAPRIL
     Indication: PRODUCT USED FOR UNKNOWN INDICATION
     Dosage: 5 MG, QD
     Route: 065
  44. SALMETEROL [Concomitant]
     Active Substance: SALMETEROL
     Indication: PRODUCT USED FOR UNKNOWN INDICATION
     Dosage: UNK, BID (UNK, Q12H)
     Route: 065
  45. SPIRONOLACTONE. [Concomitant]
     Active Substance: SPIRONOLACTONE
     Dosage: 25 MILLIGRAM, QD
     Route: 065
     Dates: start: 20170802

REACTIONS (3)
  - Oral candidiasis [Recovering/Resolving]
  - Toxic epidermal necrolysis [Recovered/Resolved]
  - Fungal infection [Recovering/Resolving]

NARRATIVE: CASE EVENT DATE: 2017
